FAERS Safety Report 7839115 (Version 4)
Quarter: 2012Q4

REPORT INFORMATION
  Report Type: 
  Country: JP (occurrence: JP)
  Receive Date: 20110303
  Receipt Date: 20121228
  Transmission Date: 20130627
  Serious: No
  Sender: FDA-Public Use
  Company Number: JP-ALLERGAN-1102864US

PATIENT
  Age: 77 Year
  Sex: Female

DRUGS (12)
  1. LUMIGAN [Suspect]
     Indication: PRIMARY OPEN ANGLE GLAUCOMA
     Dosage: 1 Gtt, qd
     Route: 047
     Dates: start: 20100518, end: 20110517
  2. LUMIGAN [Suspect]
     Dosage: 1 Gtt, qd
     Route: 047
     Dates: start: 20100518
  3. MIKELAN [Concomitant]
     Indication: DRUG USE FOR UNKNOWN INDICATION
     Dosage: UNK
     Route: 047
     Dates: end: 20121012
  4. MIKELAN [Concomitant]
     Dosage: UNK
     Route: 047
     Dates: start: 20101116, end: 20101214
  5. MIKELAN LA [Concomitant]
     Indication: DRUG USE FOR UNKNOWN INDICATION
     Dosage: UNK
     Dates: start: 20101214
  6. TRUSOPT [Concomitant]
     Indication: DRUG USE FOR UNKNOWN INDICATION
     Route: 047
  7. AZOPT [Concomitant]
     Indication: DRUG USE FOR UNKNOWN INDICATION
     Dosage: UNK
  8. DETANTOL [Concomitant]
     Indication: DRUG USE FOR UNKNOWN INDICATION
     Dosage: UNK
     Route: 047
     Dates: start: 20101214
  9. FLUMETHOLON [Concomitant]
     Indication: DRUG USE FOR UNKNOWN INDICATION
     Route: 047
  10. TIMOPTOL [Concomitant]
     Indication: DRUG USE FOR UNKNOWN INDICATION
     Dosage: UNK
     Route: 047
     Dates: start: 20101012, end: 20111116
  11. DIAMOX [Concomitant]
     Indication: DRUG USE FOR UNKNOWN INDICATION
     Dosage: UNK
     Dates: start: 20110111, end: 20110208
  12. ASPARA K [Concomitant]
     Indication: DRUG USE FOR UNKNOWN INDICATION
     Dosage: UNK
     Dates: start: 20110111, end: 20110208

REACTIONS (4)
  - Intraocular pressure increased [Not Recovered/Not Resolved]
  - Intraocular pressure increased [Not Recovered/Not Resolved]
  - Conjunctival hyperaemia [Recovering/Resolving]
  - Therapeutic response decreased [Unknown]
